FAERS Safety Report 24299295 (Version 1)
Quarter: 2024Q3

REPORT INFORMATION
  Report Type: Spontaneous
  Country: US (occurrence: None)
  Receive Date: 20240909
  Receipt Date: 20240909
  Transmission Date: 20241016
  Serious: Yes (Death)
  Sender: Public
  Company Number: None

PATIENT
  Age: 74 Year
  Sex: Female

DRUGS (8)
  1. ORENCIA [Suspect]
     Active Substance: ABATACEPT
     Indication: Rheumatoid arthritis
     Dosage: FREQUENCY : WEEKLY;?
     Route: 058
     Dates: start: 20240827, end: 20240905
  2. ATORVASTATI N TAB 20MG [Concomitant]
  3. BREO ELLIPTA INH 100-25 [Concomitant]
  4. ENBREL [Concomitant]
     Active Substance: ETANERCEPT
  5. FUROSEMIDE [Concomitant]
     Active Substance: FUROSEMIDE
  6. LISINOP/HCTZTAB 10-12.5 [Concomitant]
  7. METFORMIN TAB 500MG ER [Concomitant]
  8. VENLAFAXINE CAP 37.5 ER [Concomitant]

REACTIONS (1)
  - Death [None]

NARRATIVE: CASE EVENT DATE: 20240905
